FAERS Safety Report 8433085-6 (Version None)
Quarter: 2012Q2

REPORT INFORMATION
  Report Type: 
  Country: None (occurrence: None)
  Receive Date: 20120323
  Receipt Date: 20110602
  Transmission Date: 20120825
  Serious: Yes (Hospitalization)
  Sender: FDA-Public Use
  Company Number: 163-21880-11060378

PATIENT
  Age: 78 Year
  Sex: Female

DRUGS (9)
  1. ALBUTEROL SULFATE [Concomitant]
  2. XANAX [Concomitant]
  3. SPIRIVA [Concomitant]
  4. ARICEPT [Concomitant]
  5. ZOLOFT [Concomitant]
  6. SYNTHROID [Concomitant]
  7. PROTONIX [Concomitant]
  8. REVLIMID [Suspect]
     Indication: MULTIPLE MYELOMA
     Dosage: 25 MG, 1 IN 1 D, PO
     Route: 048
     Dates: start: 20110421
  9. ADVAIR HFA (SERETIDE MITE) [Concomitant]

REACTIONS (1)
  - DYSPNOEA [None]
